FAERS Safety Report 10383411 (Version 1)
Quarter: 2014Q3

REPORT INFORMATION
  Report Type: Spontaneous
  Country: FR (occurrence: FR)
  Receive Date: 20140814
  Receipt Date: 20140814
  Transmission Date: 20150326
  Serious: Yes (Death, Other)
  Sender: FDA-Public Use
  Company Number: PHHY2014FR096926

PATIENT
  Age: 82 Year
  Sex: Female

DRUGS (3)
  1. FLUINDIONE [Concomitant]
     Active Substance: FLUINDIONE
     Dosage: 20 MG, UNK
     Route: 048
  2. VITAMIN K1 [Suspect]
     Active Substance: PHYTONADIONE
     Dosage: 10 MG, UNK
  3. RED BLOOD CELLS [Concomitant]
     Active Substance: HUMAN RED BLOOD CELL

REACTIONS (6)
  - Coronary artery embolism [Unknown]
  - Cardiogenic shock [Unknown]
  - Ventricular tachycardia [Unknown]
  - Coronary artery occlusion [Unknown]
  - Acute myocardial infarction [Unknown]
  - Multi-organ failure [Fatal]
